FAERS Safety Report 6544330-6 (Version None)
Quarter: 2010Q1

REPORT INFORMATION
  Report Type: 
  Country: None (occurrence: None)
  Receive Date: 20100120
  Receipt Date: 20100120
  Transmission Date: 20100710
  Serious: Yes (Life-Threatening, Hospitalization, Other)
  Sender: FDA-Public Use
  Company Number: None

PATIENT
  Age: 26 Year
  Sex: Male
  Weight: 63.5036 kg

DRUGS (1)
  1. ZYRTEC [Suspect]
     Indication: RASH
     Dosage: 10MG ONCE DAILY PO
     Route: 048
     Dates: start: 20080130, end: 20090202

REACTIONS (4)
  - GASTROINTESTINAL DISORDER [None]
  - IDIOPATHIC THROMBOCYTOPENIC PURPURA [None]
  - LYMPHOEDEMA [None]
  - VERTIGO [None]
